FAERS Safety Report 6667153-6 (Version None)
Quarter: 2010Q1

REPORT INFORMATION
  Report Type: 
  Country: None (occurrence: None)
  Receive Date: 20100331
  Receipt Date: 20100318
  Transmission Date: 20100710
  Serious: Yes (Death, Other)
  Sender: FDA-Public Use
  Company Number: CL-77-2010

PATIENT
  Age: 42 Year
  Sex: Male

DRUGS (4)
  1. CIPROFLOXACIN UNK UNK [Suspect]
  2. METRONIDAZOLE UNK UNK [Suspect]
  3. FLUCONAZOLE [Suspect]
  4. PHENYTOIN UNK UNK [Suspect]

REACTIONS (5)
  - ACUTE HEPATIC FAILURE [None]
  - HEPATIC ENCEPHALOPATHY [None]
  - HEPATITIS ACUTE [None]
  - IDIOSYNCRATIC DRUG REACTION [None]
  - NEUROTOXICITY [None]
